FAERS Safety Report 22344684 (Version 1)
Quarter: 2023Q2

REPORT INFORMATION
  Report Type: Spontaneous
  Country: US (occurrence: None)
  Receive Date: 20230518
  Receipt Date: 20230518
  Transmission Date: 20230722
  Serious: Yes (Life-Threatening)
  Sender: FDA-Public Use
  Company Number: None

PATIENT
  Age: 72 Year
  Sex: Female
  Weight: 62.6 kg

DRUGS (2)
  1. BELBUCA [Suspect]
     Active Substance: BUPRENORPHINE HYDROCHLORIDE
     Dosage: OTHER QUANTITY : FILM EVERY 12 HOUR;?
     Route: 048
     Dates: end: 20230322
  2. BUPRENORPHINE [Suspect]
     Active Substance: BUPRENORPHINE

REACTIONS (10)
  - Inadequate analgesia [None]
  - Adverse drug reaction [None]
  - Feeling abnormal [None]
  - Nausea [None]
  - Vomiting [None]
  - Brain fog [None]
  - Dizziness [None]
  - Gait inability [None]
  - Speech disorder [None]
  - Wrong technique in product usage process [None]

NARRATIVE: CASE EVENT DATE: 20230315
